FAERS Safety Report 9260332 (Version 1)
Quarter: 2013Q2

REPORT INFORMATION
  Report Type: Report from Study
  Country: VE (occurrence: VE)
  Receive Date: 20130429
  Receipt Date: 20130429
  Transmission Date: 20140414
  Serious: Yes (Death)
  Sender: FDA-Public Use
  Company Number: PHHY2013VE041852

PATIENT
  Age: 34 Year
  Sex: Female

DRUGS (1)
  1. SANDOSTATIN LAR (PATIENT BASIS) [Suspect]
     Dosage: 20 MG, UNK

REACTIONS (1)
  - Hepatic cancer [Fatal]
